FAERS Safety Report 4306913-3 (Version None)
Quarter: 2004Q1

REPORT INFORMATION
  Report Type: 
  Country: None (occurrence: None)
  Receive Date: 20040227
  Receipt Date: 20031210
  Transmission Date: 20041129
  Serious: Yes (Other)
  Sender: FDA-Public Use
  Company Number: PHEH2003US11302

PATIENT
  Age: 51 Year
  Sex: Male
  Weight: 85 kg

DRUGS (4)
  1. GLEEVEC [Suspect]
     Indication: CHRONIC MYELOID LEUKAEMIA
     Dosage: 400 MG, QD
     Route: 048
     Dates: start: 20031217
  2. DIGOXIN [Concomitant]
     Indication: ATRIAL FIBRILLATION
     Dosage: UNK, UNK
     Route: 048
     Dates: start: 19990101, end: 20031010
  3. XANAX [Concomitant]
     Indication: ANXIETY
     Dosage: .5 MG, Q6H
     Route: 048
  4. COMPAZINE [Concomitant]
     Indication: NAUSEA
     Dosage: 10 MG, Q6H-8H, PRN
     Route: 048
     Dates: start: 20031201

REACTIONS (3)
  - BLOOD PRESSURE DECREASED [None]
  - HEART RATE DECREASED [None]
  - NO ADVERSE EFFECT [None]
